FAERS Safety Report 6617502-X (Version None)
Quarter: 2010Q1

REPORT INFORMATION
  Report Type: 
  Country: None (occurrence: None)
  Receive Date: 20100302
  Receipt Date: 20100216
  Transmission Date: 20100710
  Serious: Yes (Other)
  Sender: FDA-Public Use
  Company Number: 20100072

PATIENT
  Age: 55 Year
  Sex: Female

DRUGS (3)
  1. EPINEPHRINE [Suspect]
     Indication: ANAPHYLACTIC REACTION
     Dosage: 100 UG (0.1 MG/ML) INTRAVENOUS
     Route: 042
  2. HYDROCORTISONE HEMISUCCINATE [Concomitant]
  3. DIPHENHYDRAMINE HYDROCHLORIDE [Concomitant]

REACTIONS (6)
  - ARTERIOSPASM CORONARY [None]
  - FEELING ABNORMAL [None]
  - HEART INJURY [None]
  - HYPOTENSION [None]
  - MYOCARDIAL ISCHAEMIA [None]
  - VENTRICULAR TACHYCARDIA [None]
